FAERS Safety Report 16739652 (Version 1)
Quarter: 2019Q3

REPORT INFORMATION
  Report Type: Report from Study
  Country: IT (occurrence: IT)
  Receive Date: 20190826
  Receipt Date: 20190826
  Transmission Date: 20191005
  Serious: Yes (Hospitalization)
  Sender: FDA-Public Use
  Company Number: IT-TEVA-2019-IT-1096238

PATIENT
  Age: 75 Year
  Sex: Female

DRUGS (4)
  1. PAROXETINA ACTAVIS [Suspect]
     Active Substance: PAROXETINE HYDROCHLORIDE
     Route: 048
     Dates: start: 20171211, end: 20181211
  2. OLANZAPINA ACTAVIS [Suspect]
     Active Substance: OLANZAPINE
     Route: 048
     Dates: start: 20171211, end: 20181211
  3. DELORAZEPAM ABC 1 MG/ML GOCCE ORALI, SOLUZIONE [Suspect]
     Active Substance: DELORAZEPAM
     Route: 048
     Dates: start: 20171211, end: 20181211
  4. GABAPENTIN ABC 100 MG CAPSULE RIGIDE [Suspect]
     Active Substance: GABAPENTIN
     Route: 048
     Dates: start: 20171211, end: 20181211

REACTIONS (2)
  - Pulmonary oedema [Recovered/Resolved]
  - Respiratory failure [Recovered/Resolved]

NARRATIVE: CASE EVENT DATE: 20181211
